FAERS Safety Report 4465952-2 (Version None)
Quarter: 2004Q3

REPORT INFORMATION
  Report Type: 
  Country: None (occurrence: None)
  Receive Date: 20040930
  Receipt Date: 20040917
  Transmission Date: 20050211
  Serious: Yes (Hospitalization)
  Sender: FDA-Public Use
  Company Number: RS004716-F

PATIENT
  Age: 39 Year
  Sex: Male

DRUGS (4)
  1. RABEPRAZOLE SODIUM [Suspect]
     Indication: ABDOMINAL PAIN
     Dosage: ORAL
     Route: 048
  2. OMEPRAZOLE [Suspect]
     Indication: ABDOMINAL PAIN
     Dosage: 10 MG
     Dates: start: 20040806, end: 20040808
  3. MYOLASTAN            (TETRAZEPAM) [Concomitant]
  4. KESTIN (EBASTINE) [Concomitant]

REACTIONS (12)
  - ANAEMIA [None]
  - ARTHRALGIA [None]
  - BONE PAIN [None]
  - FACE OEDEMA [None]
  - HYPERTENSION [None]
  - LOCALISED OEDEMA [None]
  - MUSCLE CONTRACTURE [None]
  - MYALGIA [None]
  - NECK PAIN [None]
  - OEDEMA PERIPHERAL [None]
  - PROTEINURIA [None]
  - RENAL FAILURE [None]
